FAERS Safety Report 13801214 (Version 1)
Quarter: 2017Q3

REPORT INFORMATION
  Report Type: Spontaneous
  Country: US (occurrence: US)
  Receive Date: 20170727
  Receipt Date: 20170727
  Transmission Date: 20171127
  Serious: Yes (Death, Other)
  Sender: FDA-Public Use
  Company Number: US-TEVA-791312USA

PATIENT
  Age: 87 Year
  Sex: Male
  Weight: 62 kg

DRUGS (6)
  1. ZOCOR [Concomitant]
     Active Substance: SIMVASTATIN
  2. XTANDI [Suspect]
     Active Substance: ENZALUTAMIDE
     Indication: PROSTATE CANCER
     Dosage: 160 MILLIGRAM DAILY;
     Route: 048
     Dates: start: 20170315, end: 20170531
  3. AMLODIPINE [Concomitant]
     Active Substance: AMLODIPINE BESYLATE
  4. WARFARIN [Suspect]
     Active Substance: WARFARIN
     Dosage: 3 MILLIGRAM DAILY;
     Route: 065
  5. LUPRON [Concomitant]
     Active Substance: LEUPROLIDE ACETATE
  6. AVAPRO [Concomitant]
     Active Substance: IRBESARTAN

REACTIONS (6)
  - Hydronephrosis [Unknown]
  - Flank pain [Unknown]
  - Internal haemorrhage [Fatal]
  - Hypotension [Unknown]
  - Arterial rupture [Fatal]
  - Anaemia [Unknown]

NARRATIVE: CASE EVENT DATE: 20170527
